FAERS Safety Report 23592847 (Version 1)
Quarter: 2024Q1

REPORT INFORMATION
  Report Type: Spontaneous
  Country: DE (occurrence: DE)
  Receive Date: 20240304
  Receipt Date: 20240304
  Transmission Date: 20240410
  Serious: Yes (Other)
  Sender: FDA-Public Use
  Company Number: DE-SANMEDPRD-2024-DEU-001445

PATIENT

DRUGS (1)
  1. LATANOPROST\NETARSUDIL MESYLATE [Suspect]
     Active Substance: LATANOPROST\NETARSUDIL MESYLATE
     Indication: Glaucoma
     Dosage: 1 TIME PER DAY. U. LEFT EYE - 1 DROP EACH
     Dates: start: 20240210, end: 20240214

REACTIONS (6)
  - Arrhythmia [Recovering/Resolving]
  - Musculoskeletal discomfort [Recovering/Resolving]
  - Joint stiffness [Recovering/Resolving]
  - Blood pressure increased [Recovering/Resolving]
  - Fatigue [Recovering/Resolving]
  - Dyspnoea [Recovering/Resolving]

NARRATIVE: CASE EVENT DATE: 20240210
